FAERS Safety Report 5357713-7 (Version None)
Quarter: 2007Q2

REPORT INFORMATION
  Report Type: 
  Country: None (occurrence: None)
  Receive Date: 20070614
  Receipt Date: 20070425
  Transmission Date: 20071010
  Serious: Yes (Other)
  Sender: FDA-Public Use
  Company Number: US-PFIZER INC-2006121031

PATIENT
  Sex: Female

DRUGS (6)
  1. BEXTRA [Suspect]
     Indication: GOUT
  2. SYNTHROID [Concomitant]
  3. PERSANTINE [Concomitant]
  4. LOTENSIN [Concomitant]
  5. ACETYLSALICYLIC ACID SRT [Concomitant]
  6. ESTRATEST [Concomitant]

REACTIONS (1)
  - STEVENS-JOHNSON SYNDROME [None]
